FAERS Safety Report 8567676-9 (Version None)
Quarter: 2012Q3

REPORT INFORMATION
  Report Type: 
  Country: None (occurrence: None)
  Receive Date: 20120803
  Receipt Date: 20120725
  Transmission Date: 20120928
  Serious: Yes (Life-Threatening, Hospitalization, Other)
  Sender: FDA-Public Use
  Company Number: DE-JNJFOC-20120801746

PATIENT
  Sex: Male
  Weight: 88 kg

DRUGS (6)
  1. LERCANIDIPINE [Concomitant]
     Indication: HYPERTENSION
  2. DIGOXIN [Concomitant]
     Indication: HEART RATE IRREGULAR
  3. RAMIPRIL [Concomitant]
     Indication: HYPERTENSION
  4. XARELTO [Suspect]
     Indication: ATRIAL FIBRILLATION
     Route: 048
     Dates: end: 20120628
  5. SIMVASTATIN [Concomitant]
     Indication: BLOOD CHOLESTEROL ABNORMAL
  6. XARELTO [Suspect]
     Indication: CEREBROVASCULAR ACCIDENT PROPHYLAXIS
     Route: 048
     Dates: end: 20120628

REACTIONS (2)
  - EMBOLISM [None]
  - POST PROCEDURAL HAEMORRHAGE [None]
